FAERS Safety Report 24109835 (Version 3)
Quarter: 2024Q3

REPORT INFORMATION
  Report Type: Other
  Country: US (occurrence: US)
  Receive Date: 20240718
  Receipt Date: 20240923
  Transmission Date: 20241017
  Serious: Yes (Hospitalization)
  Sender: RHYTHM PHARMACEUTICALS
  Company Number: US-Rhythm Pharmaceuticals, Inc.-2024RHM000301

PATIENT
  Age: 8 Year
  Sex: Male

DRUGS (2)
  1. IMCIVREE [Suspect]
     Active Substance: SETMELANOTIDE
     Indication: Product use in unapproved indication
     Route: 058
     Dates: start: 20240529
  2. IMCIVREE [Suspect]
     Active Substance: SETMELANOTIDE
     Route: 058

REACTIONS (8)
  - Hospitalisation [Unknown]
  - Weight increased [Unknown]
  - Pigmentation lip [Unknown]
  - Fluid retention [Unknown]
  - Product use in unapproved indication [Not Recovered/Not Resolved]
  - Therapy interrupted [Recovered/Resolved]
  - Depressed mood [Not Recovered/Not Resolved]
  - Skin hyperpigmentation [Not Recovered/Not Resolved]

NARRATIVE: CASE EVENT DATE: 20240801
